FAERS Safety Report 9204538 (Version 2)
Quarter: 2013Q2

REPORT INFORMATION
  Report Type: Report from Study
  Country: ZA (occurrence: ZA)
  Receive Date: 20130402
  Receipt Date: 20130409
  Transmission Date: 20140414
  Serious: Yes (Death, Hospitalization)
  Sender: FDA-Public Use
  Company Number: ZA-ROCHE-1207025

PATIENT
  Age: 46 Year
  Sex: Male

DRUGS (5)
  1. MIRCERA [Suspect]
     Indication: RENAL FAILURE CHRONIC
     Route: 058
     Dates: start: 201004
  2. MIRCERA [Suspect]
     Dosage: DOSE INCREASED
     Route: 058
     Dates: start: 201010
  3. MIRCERA [Suspect]
     Dosage: DOSE INCREASED
     Route: 058
     Dates: start: 201102, end: 201301
  4. RECORMON [Suspect]
     Indication: PRODUCT USED FOR UNKNOWN INDICATION
     Route: 065
     Dates: start: 200904, end: 201004
  5. VENOFER [Concomitant]
     Route: 065

REACTIONS (2)
  - Death [Fatal]
  - Appendicitis [Unknown]
